FAERS Safety Report 4748484-3 (Version None)
Quarter: 2005Q3

REPORT INFORMATION
  Report Type: 
  Country: None (occurrence: None)
  Receive Date: 20050818
  Receipt Date: 20050818
  Transmission Date: 20060218
  Serious: Yes (Other)
  Sender: FDA-Public Use
  Company Number: None

PATIENT
  Sex: Male
  Weight: 94.3482 kg

DRUGS (1)
  1. TRICOR [Suspect]
     Dosage: 145MG PO QD
     Route: 048
     Dates: start: 20050201, end: 20050415

REACTIONS (1)
  - HIGH DENSITY LIPOPROTEIN DECREASED [None]
